FAERS Safety Report 23862098 (Version 3)
Quarter: 2024Q3

REPORT INFORMATION
  Report Type: Report from Study
  Country: US (occurrence: US)
  Receive Date: 20240516
  Receipt Date: 20240708
  Transmission Date: 20241017
  Serious: Yes (Hospitalization, Other)
  Sender: JOHNSON AND JOHNSON
  Company Number: US-JNJFOC-20240423015

PATIENT
  Age: 81 Year
  Sex: Female

DRUGS (5)
  1. MACITENTAN [Suspect]
     Active Substance: MACITENTAN
     Indication: Pulmonary arterial hypertension
     Route: 048
     Dates: start: 202311
  2. XARELTO [Suspect]
     Active Substance: RIVAROXABAN
     Indication: Product used for unknown indication
     Route: 048
  3. PANTOPRAZOLE [Concomitant]
     Active Substance: PANTOPRAZOLE
  4. MELOXICAM [Concomitant]
     Active Substance: MELOXICAM
  5. VIAGRA [Concomitant]
     Active Substance: SILDENAFIL CITRATE

REACTIONS (13)
  - Internal haemorrhage [Unknown]
  - Anaemia [Unknown]
  - Angina pectoris [Unknown]
  - Pain [Unknown]
  - Dyspnoea [Unknown]
  - Walking aid user [Unknown]
  - Pruritus [Unknown]
  - Fatigue [Unknown]
  - Medical procedure [Unknown]
  - Swelling [Recovering/Resolving]
  - Weight decreased [Unknown]
  - Arthritis [Unknown]
  - Nephropathy [Unknown]

NARRATIVE: CASE EVENT DATE: 20231101
